FAERS Safety Report 7914182-8 (Version None)
Quarter: 2011Q4

REPORT INFORMATION
  Report Type: 
  Country: None (occurrence: None)
  Receive Date: 20111115
  Receipt Date: 20111115
  Transmission Date: 20120403
  Serious: Yes (Other)
  Sender: FDA-Public Use
  Company Number: None

PATIENT
  Age: 79 Year
  Sex: Female
  Weight: 87.7 kg

DRUGS (3)
  1. ENOXAPARIN [Concomitant]
     Dosage: 100 MG
     Route: 058
     Dates: start: 20111031, end: 20111103
  2. ENOXAPARIN [Suspect]
     Indication: DEEP VEIN THROMBOSIS
     Dosage: 120 MG
     Route: 058
     Dates: start: 20111028, end: 20111030
  3. SULFAMETHOXAZOLE AND TRIMETHOPRIM [Concomitant]

REACTIONS (1)
  - MULTIPLE ALLERGIES [None]
